FAERS Safety Report 12816977 (Version 1)
Quarter: 2016Q4

REPORT INFORMATION
  Report Type: Spontaneous
  Country: US (occurrence: US)
  Receive Date: 20161005
  Receipt Date: 20161005
  Transmission Date: 20170207
  Serious: Yes (Hospitalization)
  Sender: FDA-Public Use
  Company Number: None

PATIENT
  Age: 51 Year
  Sex: Female
  Weight: 48.9 kg

DRUGS (1)
  1. OPDIVO [Suspect]
     Active Substance: NIVOLUMAB
     Indication: NON-SMALL CELL LUNG CANCER
     Dosage: OTHER INTRAVENOUS DRIP
     Route: 041
     Dates: start: 20161004, end: 20161004

REACTIONS (5)
  - Dyspnoea [None]
  - Pneumonia [None]
  - Acute myocardial infarction [None]
  - Respiratory failure [None]
  - Acute pulmonary oedema [None]

NARRATIVE: CASE EVENT DATE: 20161004
